FAERS Safety Report 19924064 (Version 2)
Quarter: 2021Q4

REPORT INFORMATION
  Report Type: Spontaneous
  Country: PL (occurrence: None)
  Receive Date: 20211006
  Receipt Date: 20211119
  Transmission Date: 20220303
  Serious: Yes (Hospitalization, Other)
  Sender: FDA-Public Use
  Company Number: 2021A751063

PATIENT
  Age: 60 Year
  Sex: Male

DRUGS (11)
  1. ROSUVASTATIN [Suspect]
     Active Substance: ROSUVASTATIN
     Indication: Cardiac failure chronic
     Route: 065
  2. RAMIPRIL [Suspect]
     Active Substance: RAMIPRIL
     Indication: Cardiac failure chronic
     Route: 065
  3. ASPIRIN [Suspect]
     Active Substance: ASPIRIN
     Indication: Cardiac failure chronic
     Route: 065
  4. FUROSEMIDE [Suspect]
     Active Substance: FUROSEMIDE
     Indication: Cardiac failure chronic
     Dosage: 20-40 MG
     Route: 065
  5. BISOPROLOL [Suspect]
     Active Substance: BISOPROLOL
     Indication: Cardiac failure chronic
     Route: 065
  6. APIXABAN [Suspect]
     Active Substance: APIXABAN
     Indication: Cardiac failure chronic
     Route: 065
  7. TORSEMIDE [Suspect]
     Active Substance: TORSEMIDE
     Indication: Cardiac failure chronic
     Dosage: 10.0MG UNKNOWN
     Route: 065
  8. CLOPIDOGREL [Suspect]
     Active Substance: CLOPIDOGREL BISULFATE
     Indication: Cardiac failure chronic
     Route: 065
  9. OMEPRAZOLE [Suspect]
     Active Substance: OMEPRAZOLE
     Indication: Cardiac failure chronic
     Dosage: UNK
     Route: 065
  10. ENTRESTO [Concomitant]
     Active Substance: SACUBITRIL\VALSARTAN
     Indication: Product used for unknown indication
     Dosage: 24/26
     Route: 065
  11. ENTRESTO [Concomitant]
     Active Substance: SACUBITRIL\VALSARTAN
     Indication: Product used for unknown indication
     Dosage: 49/51 MG
     Route: 065

REACTIONS (7)
  - Atrial fibrillation [Unknown]
  - Cardiac failure [Recovering/Resolving]
  - Myocardial infarction [Unknown]
  - Dyslipidaemia [Unknown]
  - Product use in unapproved indication [Unknown]
  - Intentional product use issue [Unknown]
  - Off label use [Unknown]

NARRATIVE: CASE EVENT DATE: 20201001
